FAERS Safety Report 9407128 (Version 1)
Quarter: 2013Q3

REPORT INFORMATION
  Report Type: Spontaneous
  Country: DE (occurrence: DE)
  Receive Date: 20130718
  Receipt Date: 20130718
  Transmission Date: 20140515
  Serious: Yes (Hospitalization)
  Sender: FDA-Public Use
  Company Number: GXKR2013DE002312

PATIENT
  Sex: 0
  Weight: 70 kg

DRUGS (1)
  1. OFLOXACIN [Suspect]
     Indication: BRONCHITIS
     Dosage: 200 MG, BID
     Route: 048

REACTIONS (1)
  - Tendon pain [Not Recovered/Not Resolved]
